FAERS Safety Report 9692117 (Version 1)
Quarter: 2013Q4

REPORT INFORMATION
  Report Type: Spontaneous
  Country: US (occurrence: US)
  Receive Date: 20131118
  Receipt Date: 20131118
  Transmission Date: 20140711
  Serious: Yes (Hospitalization)
  Sender: FDA-Public Use
  Company Number: US-BIOGENIDEC-2013BI110100

PATIENT
  Age: 53 Year
  Sex: Female

DRUGS (7)
  1. AVONEX [Suspect]
     Indication: MULTIPLE SCLEROSIS
     Route: 030
     Dates: start: 20090211
  2. ALDARA [Concomitant]
  3. DITROPAN [Concomitant]
  4. HYDROCODONE-ACETAMINOPHEN [Concomitant]
  5. LOXITANE [Concomitant]
  6. METHOTREXATE [Concomitant]
  7. MOTRIN IB [Concomitant]

REACTIONS (1)
  - Pneumonia [Unknown]
